FAERS Safety Report 15787184 (Version 2)
Quarter: 2019Q1

REPORT INFORMATION
  Report Type: Spontaneous
  Country: US (occurrence: US)
  Receive Date: 20190103
  Receipt Date: 20190211
  Transmission Date: 20190417
  Serious: No
  Sender: FDA-Public Use
  Company Number: US-PFIZER INC-2019000771

PATIENT
  Age: 68 Year
  Sex: Female
  Weight: 102 kg

DRUGS (2)
  1. LYRICA [Suspect]
     Active Substance: PREGABALIN
     Indication: PAIN MANAGEMENT
     Dosage: 50 MG, 3X/DAY
     Route: 048
     Dates: start: 201501, end: 201812
  2. LYRICA [Suspect]
     Active Substance: PREGABALIN
     Indication: FIBROMYALGIA

REACTIONS (3)
  - Fatigue [Unknown]
  - Malaise [Unknown]
  - Insomnia [Unknown]

NARRATIVE: CASE EVENT DATE: 201812
